FAERS Safety Report 13656065 (Version 1)
Quarter: 2017Q2

REPORT INFORMATION
  Report Type: Other
  Country: CA (occurrence: CA)
  Receive Date: 20170615
  Receipt Date: 20170615
  Transmission Date: 20170830
  Serious: Yes (Other)
  Sender: FDA-Public Use
  Company Number: CA-LUPIN PHARMACEUTICALS INC.-2017-02923

PATIENT
  Age: 27 Year
  Sex: Female

DRUGS (2)
  1. NORETHINDRONE. [Suspect]
     Active Substance: NORETHINDRONE
     Indication: CONTRACEPTION
     Dosage: 1 EVERY 1 DAY(S)
     Route: 048
  2. ATORVASTATIN [Concomitant]
     Active Substance: ATORVASTATIN
     Indication: HYPERLIPIDAEMIA
     Dosage: 8 MG, QD
     Route: 048

REACTIONS (3)
  - Pregnancy on oral contraceptive [Not Recovered/Not Resolved]
  - Exposure during pregnancy [Not Recovered/Not Resolved]
  - Treatment noncompliance [Not Recovered/Not Resolved]
